FAERS Safety Report 20005254 (Version 1)
Quarter: 2021Q4

REPORT INFORMATION
  Report Type: Spontaneous
  Country: US (occurrence: US)
  Receive Date: 20211028
  Receipt Date: 20211028
  Transmission Date: 20220303
  Serious: Yes (Other)
  Sender: FDA-Public Use
  Company Number: US-HIKMA PHARMACEUTICALS USA INC.-US-H14001-21-04516

PATIENT
  Age: 68 Year
  Sex: Female

DRUGS (3)
  1. DAUNORUBICIN [Suspect]
     Active Substance: DAUNORUBICIN
     Indication: Acute leukaemia
     Dosage: UNKNOWN
     Route: 065
  2. CYTARABINE [Suspect]
     Active Substance: CYTARABINE
     Indication: Acute leukaemia
     Dosage: UNKNOWN
     Route: 065
  3. CLADRIBINE [Suspect]
     Active Substance: CLADRIBINE
     Indication: Acute leukaemia
     Dosage: UNKNOWN
     Route: 065

REACTIONS (4)
  - Febrile neutropenia [Unknown]
  - Colitis [Unknown]
  - Sinusitis [Unknown]
  - Empyema [Unknown]
